FAERS Safety Report 9357035 (Version 1)
Quarter: 2013Q2

REPORT INFORMATION
  Report Type: Spontaneous
  Country: GB (occurrence: None)
  Receive Date: 20130617
  Receipt Date: 20130617
  Transmission Date: 20140414
  Serious: Yes (Death, Life-Threatening, Disabling, Other)
  Sender: FDA-Public Use
  Company Number: GER/UKI/13/0029972

PATIENT
  Age: 51 Year
  Sex: Female
  Weight: 65.9 kg

DRUGS (1)
  1. FLUOXETINE (FLUOXETINE) [Suspect]
     Indication: DEPRESSION
     Dosage: 1 D
     Route: 048
     Dates: start: 20121121, end: 20121122

REACTIONS (2)
  - Completed suicide [None]
  - Asphyxia [None]
